FAERS Safety Report 11054506 (Version 1)
Quarter: 2015Q2

REPORT INFORMATION
  Report Type: Spontaneous
  Country: US (occurrence: None)
  Receive Date: 20150420
  Receipt Date: 20150420
  Transmission Date: 20150821
  Serious: Yes (Other)
  Sender: FDA-Public Use
  Company Number: US-MDCO-15-00202

PATIENT

DRUGS (1)
  1. ANGIOMAX [Suspect]
     Active Substance: BIVALIRUDIN
     Indication: PERCUTANEOUS CORONARY INTERVENTION
     Dates: start: 201502

REACTIONS (2)
  - Product container issue [None]
  - Incorrect dose administered [None]

NARRATIVE: CASE EVENT DATE: 201502
